FAERS Safety Report 18444905 (Version 1)
Quarter: 2020Q4

REPORT INFORMATION
  Report Type: Spontaneous
  Country: US (occurrence: US)
  Receive Date: 20201030
  Receipt Date: 20201030
  Transmission Date: 20210114
  Serious: Yes (Hospitalization, Other)
  Sender: FDA-Public Use
  Company Number: US-AMNEAL PHARMACEUTICALS-2020-AMRX-03296

PATIENT

DRUGS (1)
  1. DOXYCYCLINE HYCLATE. [Suspect]
     Active Substance: DOXYCYCLINE HYCLATE
     Indication: SKIN INFECTION
     Dosage: 2 CAPSULES, DAILY
     Route: 065

REACTIONS (6)
  - Central nervous system lesion [Unknown]
  - Facial pain [Unknown]
  - Cerebrovascular accident [Unknown]
  - Headache [Unknown]
  - Ear pain [Unknown]
  - Product substitution issue [Unknown]
